FAERS Safety Report 12885056 (Version 2)
Quarter: 2016Q4

REPORT INFORMATION
  Report Type: Report from Study
  Country: US (occurrence: US)
  Receive Date: 20161026
  Receipt Date: 20161117
  Transmission Date: 20170207
  Serious: Yes (Hospitalization)
  Sender: FDA-Public Use
  Company Number: US-009507513-1610USA011778

PATIENT
  Age: 84 Year
  Sex: Female

DRUGS (4)
  1. KEYTRUDA [Suspect]
     Active Substance: PEMBROLIZUMAB
     Indication: COLON CANCER
     Dosage: 100 MG, FIRST AND ONLY DOSE
     Route: 042
     Dates: start: 20160929, end: 20160929
  2. PRILOSEC [Concomitant]
     Active Substance: OMEPRAZOLE MAGNESIUM
  3. ATIVAN [Concomitant]
     Active Substance: LORAZEPAM
  4. NORCO [Concomitant]
     Active Substance: ACETAMINOPHEN\HYDROCODONE BITARTRATE

REACTIONS (7)
  - Nausea [Unknown]
  - Pain [Not Recovered/Not Resolved]
  - Dyspnoea [Unknown]
  - Off label use [Unknown]
  - Decreased appetite [Not Recovered/Not Resolved]
  - Dehydration [Recovered/Resolved]
  - Dizziness [Unknown]

NARRATIVE: CASE EVENT DATE: 2016
